FAERS Safety Report 6553790-6 (Version None)
Quarter: 2010Q1

REPORT INFORMATION
  Report Type: 
  Country: None (occurrence: None)
  Receive Date: 20100127
  Receipt Date: 20100118
  Transmission Date: 20100710
  Serious: Yes (Disabling)
  Sender: FDA-Public Use
  Company Number: US-BRISTOL-MYERS SQUIBB COMPANY-14945331

PATIENT
  Age: 71 Year
  Sex: Female

DRUGS (2)
  1. MITOMYCIN [Suspect]
     Indication: GLAUCOMA
     Route: 031
  2. ANESTHESIA [Suspect]
     Route: 056

REACTIONS (1)
  - BLINDNESS UNILATERAL [None]
